FAERS Safety Report 5982470-0 (Version None)
Quarter: 2008Q4

REPORT INFORMATION
  Report Type: 
  Country: None (occurrence: None)
  Receive Date: 20081208
  Receipt Date: 20080228
  Transmission Date: 20090506
  Serious: No
  Sender: FDA-Public Use
  Company Number: US-AMGEN-KDL267599

PATIENT
  Sex: Female

DRUGS (2)
  1. ENBREL [Suspect]
     Indication: ARTHRITIS
     Route: 058
     Dates: start: 20071101
  2. AZATHIOPRINE [Concomitant]

REACTIONS (4)
  - MUSCLE SPASMS [None]
  - PAIN IN EXTREMITY [None]
  - TOOTH INFECTION [None]
  - UPPER RESPIRATORY TRACT INFECTION [None]
